FAERS Safety Report 4470818-8 (Version None)
Quarter: 2004Q4

REPORT INFORMATION
  Report Type: 
  Country: None (occurrence: None)
  Receive Date: 20041005
  Receipt Date: 20040927
  Transmission Date: 20050328
  Serious: Yes (Death)
  Sender: FDA-Public Use
  Company Number: USA-2004-0016957

PATIENT
  Age: 44 Year
  Sex: Male

DRUGS (1)
  1. MORPHINE SULFATE [Suspect]
     Indication: CANCER PAIN
     Dosage: INTRAVENOUS
     Route: 042

REACTIONS (3)
  - ADENOCARCINOMA PANCREAS [None]
  - CONDITION AGGRAVATED [None]
  - DRUG LEVEL INCREASED [None]
